FAERS Safety Report 24575347 (Version 2)
Quarter: 2025Q4

REPORT INFORMATION
  Report Type: Report from Study
  Country: CA (occurrence: CA)
  Receive Date: 20241104
  Receipt Date: 20251106
  Transmission Date: 20260118
  Serious: Yes (Other)
  Sender: SANDOZ
  Company Number: CA-SANDOZ-SDZ2024CA078051

PATIENT
  Sex: Female

DRUGS (1)
  1. HYRIMOZ [Suspect]
     Active Substance: ADALIMUMAB-ADAZ
     Indication: Crohn^s disease
     Dosage: INDUCTION THAN 40 MG SC Q 2 WEEKS;NULL
     Route: 058
     Dates: start: 20240904

REACTIONS (4)
  - Intestinal resection [Unknown]
  - General physical health deterioration [Unknown]
  - Injection site haemorrhage [Unknown]
  - Injection site pain [Unknown]
